FAERS Safety Report 4554362-5 (Version None)
Quarter: 2004Q4

REPORT INFORMATION
  Report Type: 
  Country: None (occurrence: None)
  Receive Date: 20041227
  Receipt Date: 20041004
  Transmission Date: 20050328
  Serious: No
  Sender: FDA-Public Use
  Company Number: 04P-163-0275948-00

PATIENT
  Age: 59 Year
  Sex: Female
  Weight: 42.6381 kg

DRUGS (18)
  1. HUMIRA [Suspect]
     Indication: PSORIASIS
     Dosage: 40 MG, 1 IN 2 WK, SUBCUTANEOUS
     Route: 058
     Dates: start: 20030101
  2. HUMIRA [Suspect]
     Indication: RHEUMATOID ARTHRITIS
     Dosage: 40 MG, 1 IN 2 WK, SUBCUTANEOUS
     Route: 058
     Dates: start: 20030101
  3. METHOTREXATE SODIUM [Concomitant]
  4. ALPRAZOLAM [Concomitant]
  5. FLUOXETINE HYDROCHLORIDE [Concomitant]
  6. PREDNISONE [Concomitant]
  7. HYDROXYCHLOROQUINE PHOSPHATE [Concomitant]
  8. FLUDROCORTISONE ACETATE [Concomitant]
  9. METOPROLOL TARTRATE [Concomitant]
  10. FOLIC ACID [Concomitant]
  11. ACETAMINOPHEN [Concomitant]
  12. ESTRADIOL [Concomitant]
  13. ACETYLSALICYLIC ACID SRT [Concomitant]
  14. ERGOCALCIFEROL [Concomitant]
  15. MYCASIN [Concomitant]
  16. LATANOPROST [Concomitant]
  17. BRIMONIDINE TARTRATE [Concomitant]
  18. WARFARIN SODIUM [Concomitant]

REACTIONS (5)
  - CANDIDIASIS [None]
  - FUNGAL INFECTION [None]
  - NIGHT SWEATS [None]
  - URINARY TRACT INFECTION [None]
  - VAGINITIS BACTERIAL [None]
